FAERS Safety Report 23230087 (Version 1)
Quarter: 2023Q4

REPORT INFORMATION
  Report Type: Spontaneous
  Country: US (occurrence: None)
  Receive Date: 20231123
  Receipt Date: 20231123
  Transmission Date: 20240110
  Serious: Yes (Other)
  Sender: FDA-Public Use
  Company Number: None

PATIENT
  Sex: Female

DRUGS (8)
  1. ENBREL [Suspect]
     Active Substance: ETANERCEPT
     Indication: Rheumatoid arthritis
     Dosage: OTHER QUANTITY : 25 MG/0.5ML ;?FREQUENCY : WEEKLY;?
     Route: 058
     Dates: start: 20231010
  2. ENBREL [Suspect]
     Active Substance: ETANERCEPT
     Dosage: FREQUENCY : WEEKLY;?
     Route: 058
  3. NAPROXEN [Concomitant]
  4. ONDANSETRON [Concomitant]
  5. QULIPTA [Concomitant]
     Active Substance: ATOGEPANT
  6. SUMATRIPTAN [Concomitant]
  7. VITAMIN B12 [Concomitant]
     Active Substance: CYANOCOBALAMIN
  8. VITAMIN D3 [Concomitant]
     Active Substance: CHOLECALCIFEROL

REACTIONS (11)
  - Drug ineffective [None]
  - Loss of personal independence in daily activities [None]
  - Arthralgia [None]
  - Infection [None]
  - Fatigue [None]
  - Alopecia [None]
  - Alopecia [None]
  - Nausea [None]
  - Vomiting [None]
  - Surgery [None]
  - Intentional dose omission [None]
